FAERS Safety Report 7644443-1 (Version None)
Quarter: 2011Q3

REPORT INFORMATION
  Report Type: 
  Country: None (occurrence: None)
  Receive Date: 20110729
  Receipt Date: 20110714
  Transmission Date: 20111222
  Serious: Yes (Hospitalization, Other)
  Sender: FDA-Public Use
  Company Number: US-ELI_LILLY_AND_COMPANY-US201107001118

PATIENT
  Sex: Female

DRUGS (11)
  1. FORTEO [Suspect]
     Indication: OSTEOPOROSIS
     Dosage: 20 UG, QD
     Dates: start: 20110624, end: 20110701
  2. SIMVASTATIN [Concomitant]
     Dosage: 40 MG, UNKNOWN
  3. MULTI-VITAMIN [Concomitant]
  4. EVISTA [Suspect]
     Dosage: 60 MG, QD
     Dates: start: 20110713
  5. AMLODIPINE W/BENAZEPRIL [Concomitant]
     Dosage: 20 MG, UNKNOWN
  6. EVISTA [Suspect]
     Indication: OSTEOPOROSIS
     Dosage: 60 MG, QD
     Dates: end: 20110622
  7. VITAMIN E [Concomitant]
     Dosage: 400 IU, UNKNOWN
  8. VITAMIN D [Concomitant]
  9. BILBERRY [Concomitant]
  10. ALPRAZOLAM [Concomitant]
  11. CALCIUM PLUS D3 [Concomitant]

REACTIONS (20)
  - HEART RATE INCREASED [None]
  - FALL [None]
  - DRUG INTERACTION [None]
  - COUGH [None]
  - MULTIPLE ALLERGIES [None]
  - INJECTION SITE PAIN [None]
  - PELVIC FRACTURE [None]
  - CHEST PAIN [None]
  - CHEST DISCOMFORT [None]
  - HEADACHE [None]
  - DRUG INEFFECTIVE [None]
  - ABDOMINAL PAIN UPPER [None]
  - INCREASED UPPER AIRWAY SECRETION [None]
  - ARTHRALGIA [None]
  - IMPAIRED HEALING [None]
  - MAMMOGRAM ABNORMAL [None]
  - PARANASAL SINUS HYPERSECRETION [None]
  - ASTHENIA [None]
  - STRESS [None]
  - FATIGUE [None]
